FAERS Safety Report 7358632-7 (Version None)
Quarter: 2011Q1

REPORT INFORMATION
  Report Type: 
  Country: None (occurrence: None)
  Receive Date: 20110317
  Receipt Date: 20110311
  Transmission Date: 20110831
  Serious: Yes (Hospitalization)
  Sender: FDA-Public Use
  Company Number: US-ELI_LILLY_AND_COMPANY-US201102001212

PATIENT
  Age: 90 Year
  Sex: Female

DRUGS (2)
  1. PROZAC [Concomitant]
  2. CYMBALTA [Suspect]
     Indication: DEPRESSION
     Dosage: 1 D/F, UNK

REACTIONS (4)
  - MALAISE [None]
  - ARTHRITIS [None]
  - NECK INJURY [None]
  - FALL [None]
